FAERS Safety Report 18610530 (Version 1)
Quarter: 2020Q4

REPORT INFORMATION
  Report Type: Spontaneous
  Country: JP (occurrence: JP)
  Receive Date: 20201214
  Receipt Date: 20201214
  Transmission Date: 20210114
  Serious: Yes (Other)
  Sender: FDA-Public Use
  Company Number: JP-ORION CORPORATION ORION PHARMA-ENTC2020-0354

PATIENT
  Sex: Female

DRUGS (3)
  1. STALEVO [Suspect]
     Active Substance: CARBIDOPA\ENTACAPONE\LEVODOPA
     Indication: PARKINSON^S DISEASE
     Dosage: 1DF:LEVODOPA 50MG/CARBIDOPA 5MG/ENTACAPONE 100MG
     Route: 048
  2. EXELON [Suspect]
     Active Substance: RIVASTIGMINE TARTRATE
     Indication: HALLUCINATION
     Dosage: PATCH 2.5 (CM2)
     Route: 062
  3. STALEVO [Suspect]
     Active Substance: CARBIDOPA\ENTACAPONE\LEVODOPA
     Dosage: 1DF:LEVODOPA 100MG/CARBIDOPA 10MG/ENTACAPONE 100MG
     Route: 048

REACTIONS (3)
  - Hallucination [Unknown]
  - Dermatitis contact [Unknown]
  - Tremor [Unknown]
